FAERS Safety Report 6270792-8 (Version None)
Quarter: 2009Q3

REPORT INFORMATION
  Report Type: 
  Country: None (occurrence: None)
  Receive Date: 20090716
  Receipt Date: 20090713
  Transmission Date: 20100115
  Serious: Yes (Life-Threatening, Hospitalization, Other)
  Sender: FDA-Public Use
  Company Number: US-WYE-H10097109

PATIENT
  Sex: Male

DRUGS (7)
  1. AMIODARONE HCL [Suspect]
     Indication: DRUG USE FOR UNKNOWN INDICATION
     Dosage: UNKNOWN
     Route: 065
  2. HYDROCHLOROTHIAZIDE [Concomitant]
  3. DIGOXIN [Concomitant]
  4. NORVASC [Concomitant]
  5. COUMADIN [Concomitant]
  6. VALSARTAN [Concomitant]
     Indication: CARDIOVASCULAR DISORDER
     Dosage: CODE NOT BROKEN
     Route: 048
     Dates: end: 20050301
  7. TOPROL-XL [Concomitant]

REACTIONS (4)
  - CONJUNCTIVITIS [None]
  - DRUG TOXICITY [None]
  - INTERSTITIAL LUNG DISEASE [None]
  - PRESYNCOPE [None]
